FAERS Safety Report 7362747-7 (Version None)
Quarter: 2011Q1

REPORT INFORMATION
  Report Type: 
  Country: None (occurrence: None)
  Receive Date: 20110321
  Receipt Date: 20110310
  Transmission Date: 20110831
  Serious: No
  Sender: FDA-Public Use
  Company Number: US-BIOGENIDEC-2010BI020024

PATIENT
  Sex: Male

DRUGS (1)
  1. TYSABRI [Suspect]
     Indication: MULTIPLE SCLEROSIS
     Route: 042
     Dates: start: 20061128

REACTIONS (5)
  - NEPHROLITHIASIS [None]
  - ABDOMINAL PAIN UPPER [None]
  - VOMITING [None]
  - TESTICULAR PAIN [None]
  - NAUSEA [None]
